FAERS Safety Report 4804943-6 (Version None)
Quarter: 2005Q4

REPORT INFORMATION
  Report Type: 
  Country: None (occurrence: None)
  Receive Date: 20051017
  Receipt Date: 20050928
  Transmission Date: 20060501
  Serious: Yes (Hospitalization)
  Sender: FDA-Public Use
  Company Number: 218592

PATIENT
  Age: 57 Year
  Sex: Male
  Weight: 72.7 kg

DRUGS (3)
  1. AVASTIN(BEVACIZUMAB) PWDR + SOLVENT,INFUSION SOLN, 100MG [Suspect]
     Indication: COLON CANCER
     Dosage: 7.5 MG/M2, Q3W, INTRAVENOUS
     Route: 042
     Dates: start: 20050915
  2. CAPECITABINE (CAPECITABINE) [Suspect]
     Indication: COLON CANCER
     Dosage: 1800 MG/M2, BID, ORAL
     Route: 048
     Dates: start: 20050915
  3. OXALIPLATIN (OXALIPLATIN) [Suspect]
     Dosage: 130 MG/M2, INTRAVENOUS
     Route: 042
     Dates: start: 20050915

REACTIONS (2)
  - ABDOMINAL PAIN [None]
  - INFLAMMATION [None]
